FAERS Safety Report 23966027 (Version 1)
Quarter: 2024Q2

REPORT INFORMATION
  Report Type: Spontaneous
  Country: JP (occurrence: JP)
  Receive Date: 20240612
  Receipt Date: 20240612
  Transmission Date: 20240716
  Serious: Yes (Death, Life-Threatening, Hospitalization, Other)
  Sender: FDA-Public Use
  Company Number: None

PATIENT
  Age: 61 Year
  Sex: Female

DRUGS (3)
  1. OLANZAPINE [Suspect]
     Active Substance: OLANZAPINE
     Indication: Psychiatric symptom
     Dosage: 10 MG, UNK
     Route: 065
  2. OLANZAPINE [Suspect]
     Active Substance: OLANZAPINE
     Indication: Delusional disorder, persecutory type
  3. OLANZAPINE [Suspect]
     Active Substance: OLANZAPINE
     Indication: Condition aggravated

REACTIONS (2)
  - Pulmonary alveolar haemorrhage [Fatal]
  - Pulmonary toxicity [Fatal]
